FAERS Safety Report 7316488-2 (Version None)
Quarter: 2011Q1

REPORT INFORMATION
  Report Type: 
  Country: None (occurrence: None)
  Receive Date: 20110226
  Receipt Date: 20100726
  Transmission Date: 20110831
  Serious: No
  Sender: FDA-Public Use
  Company Number: US-ALLERGAN-1004403US

PATIENT
  Sex: Female

DRUGS (1)
  1. BOTOX COSMETIC [Suspect]
     Indication: SKIN WRINKLING
     Dosage: 55 UNITS, SINGLE
     Dates: start: 20100320, end: 20100320

REACTIONS (5)
  - SWELLING FACE [None]
  - INJECTION SITE OEDEMA [None]
  - HEADACHE [None]
  - INJECTION SITE PAIN [None]
  - DRUG INEFFECTIVE [None]
